FAERS Safety Report 21342271 (Version 4)
Quarter: 2023Q1

REPORT INFORMATION
  Report Type: Spontaneous
  Country: US (occurrence: US)
  Receive Date: 20220916
  Receipt Date: 20230209
  Transmission Date: 20230418
  Serious: Yes (Other)
  Sender: FDA-Public Use
  Company Number: US-PFIZER INC-202201162896

PATIENT
  Age: 82 Year
  Sex: Male

DRUGS (1)
  1. HEPARIN SODIUM [Suspect]
     Active Substance: HEPARIN SODIUM
     Dosage: UNK (25,000 UNITS PER 250ML HALF NORMAL SALINE)
     Route: 041
     Dates: start: 20220419, end: 20220423

REACTIONS (2)
  - Cytopenia [Unknown]
  - Thrombocytopenia [Unknown]
